FAERS Safety Report 8625175-X (Version None)
Quarter: 2012Q3

REPORT INFORMATION
  Report Type: 
  Country: None (occurrence: None)
  Receive Date: 20120827
  Receipt Date: 20080507
  Transmission Date: 20120928
  Serious: Yes (Other)
  Sender: FDA-Public Use
  Company Number: CO-PFIZER INC-2012202995

PATIENT
  Age: 63 Year
  Sex: Male

DRUGS (9)
  1. LOVASTATIN [Concomitant]
     Dosage: 20 MG, 1X/DAY
  2. LIPITOR [Suspect]
     Indication: DYSLIPIDAEMIA
     Dosage: 10 MG, 1X/DAY
  3. CAPTOPRIL [Concomitant]
     Dosage: 50 MG, 3X/DAY
  4. HYDROCHLOROTHIAZIDE [Concomitant]
     Dosage: 25 MG, 1X/DAY
  5. LOSARTAN [Concomitant]
     Dosage: 100 MG, 1X/DAY
  6. METOPROLOL TARTRATE [Concomitant]
     Dosage: 100 MG, 2X/DAY
  7. OLMESARTAN MEDOXOMIL AND HYDROCHLOROTHIZIDE [Suspect]
     Indication: HYPERTENSION
     Dosage: [OLMESARTAN MEDOXOMIL 20MG]/ [HYDROCHLOROTHIAZIDE 12.5 MG], 1X/DAY
  8. ACETYLSALICYLIC ACID [Concomitant]
     Dosage: 100 MG, 1X/DAY
  9. METOPROLOL TARTRATE [Concomitant]
     Dosage: 50 MG, 1X/DAY

REACTIONS (4)
  - CARDIAC DISORDER [None]
  - ANGIOPATHY [None]
  - HYPERTENSIVE EMERGENCY [None]
  - TOBACCO ABUSE [None]
